FAERS Safety Report 19322411 (Version 4)
Quarter: 2021Q3

REPORT INFORMATION
  Report Type: Report from Study
  Country: CA (occurrence: CA)
  Receive Date: 20210528
  Receipt Date: 20210923
  Transmission Date: 20211014
  Serious: Yes (Other)
  Sender: FDA-Public Use
  Company Number: CA-JNJFOC-20210545813

PATIENT
  Age: 41 Year
  Sex: Male
  Weight: 89 kg

DRUGS (2)
  1. COVID?19 VACCINE NOS. [Suspect]
     Active Substance: COVID-19 VACCINE NOS
     Indication: COVID-19 PROPHYLAXIS
     Route: 065
     Dates: start: 20210430, end: 20210430
  2. REMICADE [Suspect]
     Active Substance: INFLIXIMAB
     Indication: COLITIS ULCERATIVE
     Dosage: ON 22?MAY?2021, THE PATIENT RECEIVED 64TH INFLIXIMAB INFUSION FOR DOSE OF 400 MG AND PARTIAL MAYO WA
     Route: 042
     Dates: start: 20120329

REACTIONS (9)
  - Pain [Unknown]
  - Frequent bowel movements [Unknown]
  - Therapeutic product effect decreased [Unknown]
  - Weight decreased [Unknown]
  - Haematochezia [Unknown]
  - COVID-19 [Recovering/Resolving]
  - Diarrhoea [Unknown]
  - Abdominal pain [Unknown]
  - General physical health deterioration [Unknown]

NARRATIVE: CASE EVENT DATE: 2021
